FAERS Safety Report 10206077 (Version 1)
Quarter: 2014Q2

REPORT INFORMATION
  Report Type: Spontaneous
  Country: US (occurrence: None)
  Receive Date: 20140527
  Receipt Date: 20140527
  Transmission Date: 20141212
  Serious: Yes (Disabling)
  Sender: FDA-Public Use
  Company Number: None

PATIENT
  Age: 46 Year
  Sex: Female
  Weight: 91.63 kg

DRUGS (1)
  1. BYDUREON [Suspect]
     Indication: DIABETES MELLITUS
     Dosage: 2MG, WEEKLY, INJECTED INTO STOMACH
     Dates: start: 20140516, end: 20140523

REACTIONS (3)
  - Diarrhoea [None]
  - Intentional product misuse [None]
  - Drug ineffective [None]
